FAERS Safety Report 10447328 (Version 1)
Quarter: 2014Q3

REPORT INFORMATION
  Report Type: Spontaneous
  Country: US (occurrence: US)
  Receive Date: 20140911
  Receipt Date: 20140911
  Transmission Date: 20150326
  Serious: Yes (Other)
  Sender: FDA-Public Use
  Company Number: US-BAYER-2014-133899

PATIENT
  Age: 28 Year
  Sex: Female

DRUGS (2)
  1. MIRENA [Suspect]
     Active Substance: LEVONORGESTREL
     Indication: CONTRACEPTION
     Dosage: UNK
     Dates: start: 20140723, end: 20140902
  2. MIRENA [Suspect]
     Active Substance: LEVONORGESTREL
     Indication: MENORRHAGIA

REACTIONS (9)
  - Coital bleeding [None]
  - Abdominal pain [None]
  - Genital haemorrhage [None]
  - Intentional medical device removal by patient [None]
  - Genital haemorrhage [None]
  - Back pain [None]
  - Genital haemorrhage [None]
  - Abdominal pain [None]
  - Device expulsion [None]

NARRATIVE: CASE EVENT DATE: 201407
